FAERS Safety Report 9157218 (Version 5)
Quarter: 2014Q1

REPORT INFORMATION
  Report Type: Spontaneous
  Country: JP (occurrence: JP)
  Receive Date: 20130312
  Receipt Date: 20140106
  Transmission Date: 20141002
  Serious: Yes (Hospitalization)
  Sender: FDA-Public Use
  Company Number: JP-JNJFOC-20130302614

PATIENT
  Age: 11 Year
  Sex: Male
  Weight: 34 kg

DRUGS (1)
  1. CONCERTA [Suspect]
     Indication: ATTENTION DEFICIT/HYPERACTIVITY DISORDER
     Route: 048
     Dates: start: 201205, end: 20130226

REACTIONS (3)
  - Tubulointerstitial nephritis [Recovered/Resolved]
  - Upper respiratory tract infection [Recovered/Resolved]
  - Headache [Recovered/Resolved]
